FAERS Safety Report 7667886-9 (Version None)
Quarter: 2011Q3

REPORT INFORMATION
  Report Type: 
  Country: None (occurrence: None)
  Receive Date: 20110806
  Receipt Date: 20110714
  Transmission Date: 20111222
  Serious: No
  Sender: FDA-Public Use
  Company Number: US-ROXANE LABORATORIES, INC.-2011-RO-01035RO

PATIENT
  Age: 65 Year
  Sex: Male

DRUGS (1)
  1. MEGESTROL ACETATE [Suspect]
     Indication: DECREASED APPETITE
     Dosage: 20 ML
     Route: 048
     Dates: start: 20110518

REACTIONS (2)
  - GLOSSITIS [None]
  - DYSGEUSIA [None]
